FAERS Safety Report 15573570 (Version 2)
Quarter: 2018Q4

REPORT INFORMATION
  Report Type: Spontaneous
  Country: US (occurrence: US)
  Receive Date: 20181101
  Receipt Date: 20181101
  Transmission Date: 20190205
  Serious: No
  Sender: FDA-Public Use
  Company Number: US-LUPIN PHARMACEUTICALS INC.-2017-05788

PATIENT
  Age: 69 Year
  Sex: Female
  Weight: 60.77 kg

DRUGS (2)
  1. LISINOPRIL TABLETS [Suspect]
     Active Substance: LISINOPRIL
     Dosage: NOT PROVIDED
     Route: 048
     Dates: start: 20170920
  2. LISINOPRIL TABLETS [Suspect]
     Active Substance: LISINOPRIL
     Indication: HYPERTENSION
     Dosage: UNK
     Route: 048

REACTIONS (2)
  - Blood pressure increased [Not Recovered/Not Resolved]
  - Drug ineffective [Unknown]

NARRATIVE: CASE EVENT DATE: 20170920
